FAERS Safety Report 4963810-8 (Version None)
Quarter: 2006Q1

REPORT INFORMATION
  Report Type: 
  Country: None (occurrence: None)
  Receive Date: 20060330
  Receipt Date: 20060318
  Transmission Date: 20060701
  Serious: Yes (Disabling, Other)
  Sender: FDA-Public Use
  Company Number: 2006020357

PATIENT
  Sex: Female
  Weight: 62.5964 kg

DRUGS (8)
  1. LIPITOR [Suspect]
     Indication: BLOOD CHOLESTEROL INCREASED
     Dosage: 20 MG (20 MG, 1 IN 1D), ORAL
     Route: 048
     Dates: end: 20051225
  2. ZOCOR [Suspect]
     Indication: BLOOD CHOLESTEROL INCREASED
  3. LOVASTATIN [Suspect]
     Indication: BLOOD CHOLESTEROL INCREASED
  4. DILTIAZEM [Concomitant]
  5. LEVOTHYROXINE SODIUM [Concomitant]
  6. FUROSEMIDE [Concomitant]
  7. POTASSIUM (POTASSIUM) [Concomitant]
  8. ZYRTEC [Concomitant]

REACTIONS (8)
  - ABASIA [None]
  - ACOUSTIC NEUROMA [None]
  - ARTHRALGIA [None]
  - ASTHENIA [None]
  - BLOOD POTASSIUM DECREASED [None]
  - DIFFICULTY IN WALKING [None]
  - HYPOACUSIS [None]
  - MYALGIA [None]
